FAERS Safety Report 9790037 (Version 1)
Quarter: 2013Q4

REPORT INFORMATION
  Report Type: Spontaneous
  Country: US (occurrence: None)
  Receive Date: 20131230
  Receipt Date: 20131230
  Transmission Date: 20140711
  Serious: Yes (Disabling)
  Sender: FDA-Public Use
  Company Number: None

PATIENT
  Age: 22 Year
  Sex: Female
  Weight: 62.6 kg

DRUGS (1)
  1. MEFLOQUINE [Suspect]
     Indication: MALARIA PROPHYLAXIS
     Dosage: TAKEN BY MOUTH
     Dates: start: 20101001, end: 20110418

REACTIONS (10)
  - Nightmare [None]
  - Hallucination [None]
  - Anxiety [None]
  - Depression [None]
  - Personality change [None]
  - Mood altered [None]
  - Nausea [None]
  - Dizziness [None]
  - Syncope [None]
  - Anger [None]
